FAERS Safety Report 6676153-1 (Version None)
Quarter: 2010Q2

REPORT INFORMATION
  Report Type: 
  Country: None (occurrence: None)
  Receive Date: 20100412
  Receipt Date: 20100329
  Transmission Date: 20101027
  Serious: Yes (Hospitalization, Other)
  Sender: FDA-Public Use
  Company Number: US-SOLVAY-00210001943

PATIENT
  Age: 60 Year
  Sex: Female
  Weight: 57.272 kg

DRUGS (6)
  1. CALCIUM [Concomitant]
     Indication: OSTEOPOROSIS
     Dosage: DAILY DOSE:  UNKNOWN
     Route: 048
  2. ACTONEL [Concomitant]
     Indication: OSTEOPOROSIS
     Dosage: DAILY DOSE:  UNKNOWN, FREQUENCY: ONCE A MONTH
     Route: 048
  3. MORPHINE [Concomitant]
     Indication: BACK PAIN
     Dosage: DAILY DOSE:  UNKNOWN
     Route: 048
     Dates: start: 19990101
  4. CREON [Suspect]
     Indication: PANCREATITIS CHRONIC
     Dosage: CREON-10, DAILY DOSE: UNKNOWN, AS USED: 2 TO 3 CAPS, FREQUENCY: WITH MEALS AND SNACKS
     Route: 048
     Dates: start: 19910101, end: 20060101
  5. CREON [Suspect]
     Dosage: CREON-10, DAILY DOSE: UNKNOWN, AS USED: 4 TO 6 CAPS, FREQUENCY: WITH MEALS AND SNACKS
     Route: 048
     Dates: start: 20060101, end: 20100325
  6. CREON [Suspect]
     Dosage: DELAYED RELEASE,DAILY DOSE:UNK,AS USED:3CAPS,FREQ:WITH MEALS AND SNACKS,UNIT DOSE:24000 U LIPASE/CAP
     Route: 048
     Dates: start: 20100326, end: 20100327

REACTIONS (3)
  - ABDOMINAL PAIN [None]
  - BREAST CANCER FEMALE [None]
  - TREATMENT NONCOMPLIANCE [None]
